FAERS Safety Report 14955809 (Version 2)
Quarter: 2018Q3

REPORT INFORMATION
  Report Type: Spontaneous
  Country: US (occurrence: US)
  Receive Date: 20180531
  Receipt Date: 20180702
  Transmission Date: 20181010
  Serious: No
  Sender: FDA-Public Use
  Company Number: US-JNJFOC-20180513162

PATIENT
  Age: 21 Year
  Sex: Female
  Weight: 54.43 kg

DRUGS (2)
  1. SIMPONI [Suspect]
     Active Substance: GOLIMUMAB
     Indication: COLITIS ULCERATIVE
     Route: 058
     Dates: start: 2016
  2. URSODIOL. [Concomitant]
     Active Substance: URSODIOL
     Route: 065

REACTIONS (4)
  - Off label use [Unknown]
  - Product use issue [Unknown]
  - Device malfunction [Unknown]
  - Inappropriate schedule of drug administration [Unknown]

NARRATIVE: CASE EVENT DATE: 2016
